FAERS Safety Report 20094608 (Version 1)
Quarter: 2021Q4

REPORT INFORMATION
  Report Type: Spontaneous
  Country: US (occurrence: US)
  Receive Date: 20211122
  Receipt Date: 20211122
  Transmission Date: 20220303
  Serious: Yes (Death)
  Sender: FDA-Public Use
  Company Number: US-SUN PHARMACEUTICAL INDUSTRIES LTD-2021R1-318087

PATIENT
  Sex: Female

DRUGS (2)
  1. NIMODIPINE [Suspect]
     Active Substance: NIMODIPINE
     Indication: Subarachnoid haemorrhage
     Dosage: 60 MILLIGRAM, QID
     Route: 048
  2. NIMODIPINE [Suspect]
     Active Substance: NIMODIPINE
     Dosage: UNK
     Route: 042

REACTIONS (1)
  - Incorrect route of product administration [Fatal]
